FAERS Safety Report 8826845 (Version 2)
Quarter: 2012Q4

REPORT INFORMATION
  Report Type: 
  Country: US (occurrence: US)
  Receive Date: 20121005
  Receipt Date: 20121018
  Transmission Date: 20130627
  Serious: Yes (Hospitalization)
  Sender: FDA-Public Use
  Company Number: US-PFIZER INC-2012242035

PATIENT
  Age: 63 Year
  Sex: Male
  Weight: 101.6 kg

DRUGS (26)
  1. FLUOROURACIL [Suspect]
     Indication: PANCREATIC CARCINOMA
     Dosage: 8280 mg, CIVI IV infusion
     Route: 042
     Dates: start: 20120801, end: 20120801
  2. FLUOROURACIL [Suspect]
     Dosage: 880 mg, IVP IV infusion
     Route: 042
     Dates: start: 20120801, end: 20120801
  3. FLUOROURACIL [Suspect]
     Dosage: 8280 mg, CIVI IV infusion
     Route: 042
     Dates: start: 20120815, end: 20120815
  4. FLUOROURACIL [Suspect]
     Dosage: 880 mg, IVP IV infusion
     Route: 042
     Dates: start: 20120815, end: 20120815
  5. FLUOROURACIL [Suspect]
     Dosage: 8280 mg, CIVI IV infusion
     Route: 042
     Dates: start: 20120904, end: 20120904
  6. FLUOROURACIL [Suspect]
     Dosage: 880 mg, IVP IV infusion
     Route: 042
     Dates: start: 20120904, end: 20120904
  7. OXALIPLATIN [Suspect]
     Indication: PANCREATIC CARCINOMA
     Dosage: 165 mg, IV infusion
     Route: 042
     Dates: start: 20120801, end: 20120801
  8. OXALIPLATIN [Suspect]
     Dosage: 165 mg, IV infusion
     Route: 042
     Dates: start: 20120815, end: 20120815
  9. OXALIPLATIN [Suspect]
     Dosage: 165 mg, IV infusion
     Route: 042
     Dates: start: 20120904, end: 20120904
  10. IRINOTECAN HCL [Suspect]
     Indication: PANCREATIC CARCINOMA
     Dosage: 396 mg, IV infusion
     Route: 042
     Dates: start: 20120801, end: 20120801
  11. IRINOTECAN HCL [Suspect]
     Dosage: 396 mg, IV infusion
     Route: 042
     Dates: start: 20120815, end: 20120815
  12. IRINOTECAN HCL [Suspect]
     Dosage: 396 mg, IV infusion
     Route: 042
     Dates: start: 20120904, end: 20120904
  13. LEUCOVORIN [Suspect]
     Indication: PANCREATIC CARCINOMA
     Dosage: 880 mg, IV infusion
     Route: 042
     Dates: start: 20120801, end: 20120801
  14. LEUCOVORIN [Suspect]
     Dosage: 880 mg, IV infusion
     Route: 042
     Dates: start: 20120815, end: 20120815
  15. LEUCOVORIN [Suspect]
     Dosage: 880 mg, IV infusion
     Route: 042
     Dates: start: 20120904, end: 20120904
  16. ASPIRIN [Concomitant]
  17. CRESTOR [Concomitant]
  18. LIDODERM CREAM [Concomitant]
  19. LORAZEPAM [Concomitant]
  20. MAGNESIUM OXIDE [Concomitant]
  21. NEUPOGEN [Concomitant]
  22. OMEPRAZOLE [Concomitant]
  23. OXYCODONE APAP [Concomitant]
  24. PLAVIX [Concomitant]
  25. PROCHLORPERAZINE [Concomitant]
  26. SPIRONOLACTONE [Concomitant]

REACTIONS (2)
  - Lipase increased [Unknown]
  - Amylase increased [Unknown]
